FAERS Safety Report 8573173-7 (Version None)
Quarter: 2012Q3

REPORT INFORMATION
  Report Type: 
  Country: None (occurrence: None)
  Receive Date: 20120806
  Receipt Date: 20120724
  Transmission Date: 20120928
  Serious: Yes (Hospitalization)
  Sender: FDA-Public Use
  Company Number: NL-PFIZER INC-2012189245

PATIENT
  Age: 59 Year
  Sex: Male

DRUGS (5)
  1. CISPLATIN [Suspect]
     Indication: MESOTHELIOMA MALIGNANT
     Dosage: UNK MG/ML, UNK
     Dates: start: 20120625
  2. ALIMTA [Suspect]
     Indication: MESOTHELIOMA MALIGNANT
     Dosage: UNK
     Dates: start: 20120625
  3. OMEPRAZOLE [Concomitant]
     Dosage: 40 MG, 1X/DAY
     Dates: start: 20110101
  4. HYDROXOCOBALAMIN [Concomitant]
     Dosage: TIMES PER 2 ML
     Dates: start: 20120611
  5. FOLIC ACID [Concomitant]
     Dosage: 0.5 MG, 1X/DAY
     Dates: start: 20120611

REACTIONS (1)
  - PULMONARY TOXICITY [None]
